FAERS Safety Report 6267890-1 (Version None)
Quarter: 2009Q3

REPORT INFORMATION
  Report Type: 
  Country: None (occurrence: None)
  Receive Date: 20090710
  Receipt Date: 20090710
  Transmission Date: 20100115
  Serious: Yes (Hospitalization)
  Sender: FDA-Public Use
  Company Number: None

PATIENT
  Age: 60 Year
  Sex: Male
  Weight: 107.1 kg

DRUGS (15)
  1. CETUXIMAB IMCLONE [Suspect]
     Indication: CHEMOTHERAPY
     Dosage: 500 MG/M2 EVERY 2 WEEKS IV DRIP
     Route: 041
     Dates: start: 20090309, end: 20090629
  2. CETUXIMAB IMCLONE [Suspect]
     Indication: TRANSITIONAL CELL CARCINOMA
     Dosage: 500 MG/M2 EVERY 2 WEEKS IV DRIP
     Route: 041
     Dates: start: 20090309, end: 20090629
  3. GEMCITABINE [Suspect]
     Indication: CHEMOTHERAPY
     Dosage: 1000 MG/M2 WEEKLY X 3 WEEKS IV DRIP
     Route: 041
     Dates: start: 20090309, end: 20090615
  4. GEMCITABINE [Suspect]
     Indication: TRANSITIONAL CELL CARCINOMA
     Dosage: 1000 MG/M2 WEEKLY X 3 WEEKS IV DRIP
     Route: 041
     Dates: start: 20090309, end: 20090615
  5. ASPIRIN [Concomitant]
  6. MULTI-VITAMIN [Concomitant]
  7. GLUCOSAMINE COMPLEX [Concomitant]
  8. CLEOCIN T-GEL [Concomitant]
  9. MAGNESIUM SULFATE [Concomitant]
  10. PRILOSEC [Concomitant]
  11. SENOKOT [Concomitant]
  12. ABH [Concomitant]
  13. BENADRYL [Concomitant]
  14. DEXAMETHASONE [Concomitant]
  15. DOXYCYCLINE [Concomitant]

REACTIONS (1)
  - ABDOMINAL PAIN [None]
